FAERS Safety Report 8282645-4 (Version None)
Quarter: 2012Q2

REPORT INFORMATION
  Report Type: 
  Country: None (occurrence: None)
  Receive Date: 20120413
  Receipt Date: 20120411
  Transmission Date: 20120825
  Serious: No
  Sender: FDA-Public Use
  Company Number: US-PFIZER INC-2012091624

PATIENT
  Sex: Female
  Weight: 113 kg

DRUGS (5)
  1. LYRICA [Suspect]
     Indication: FIBROMYALGIA
     Dosage: 150 MG IN MORNING AND TWO TABLETS OF 150MG AT NIGHT DAILY
     Route: 048
     Dates: start: 20100101
  2. CALCIUM [Concomitant]
     Dosage: UNK
  3. MOBIC [Concomitant]
     Indication: BACK PAIN
     Dosage: 15 MG, DAILY
  4. SYNTHROID [Concomitant]
     Indication: THYROID DISORDER
     Dosage: 88 UG, DAILY
  5. PROZAC [Concomitant]
     Indication: DEPRESSION
     Dosage: 60 MG, DAILY

REACTIONS (1)
  - DRY MOUTH [None]
